FAERS Safety Report 4684836-8 (Version None)
Quarter: 2005Q2

REPORT INFORMATION
  Report Type: 
  Country: None (occurrence: None)
  Receive Date: 20050531
  Receipt Date: 20041201
  Transmission Date: 20051028
  Serious: Yes (Hospitalization, Other)
  Sender: FDA-Public Use
  Company Number: USA041284933

PATIENT
  Age: 66 Year
  Sex: Male
  Weight: 91 kg

DRUGS (4)
  1. ZYPREXA [Suspect]
     Indication: SCHIZOPHRENIA
     Dosage: 2.5 MG/1 DAY
     Dates: start: 20001201, end: 20021201
  2. CLOZARIL [Concomitant]
  3. CELEXA [Concomitant]
  4. DEPAKOTE [Concomitant]

REACTIONS (1)
  - NEUROLEPTIC MALIGNANT SYNDROME [None]
